FAERS Safety Report 8610347-0 (Version None)
Quarter: 2012Q3

REPORT INFORMATION
  Report Type: 
  Country: None (occurrence: None)
  Receive Date: 20120822
  Receipt Date: 20120815
  Transmission Date: 20120928
  Serious: Yes (Hospitalization, Other)
  Sender: FDA-Public Use
  Company Number: PHHY2012BR071577

PATIENT
  Age: 74 Year
  Sex: Female

DRUGS (1)
  1. AMLODOPINE BESYLATE AND VALSARTAN [Suspect]
     Indication: HYPERTENSION
     Dosage: 1 DF (160/5MG) DAILY

REACTIONS (6)
  - BLOOD CHOLESTEROL ABNORMAL [None]
  - HEPATIC CYST [None]
  - HEADACHE [None]
  - BENIGN NEOPLASM [None]
  - HEPATIC PAIN [None]
  - THYROID DISORDER [None]
